FAERS Safety Report 4316453-3 (Version None)
Quarter: 2004Q1

REPORT INFORMATION
  Report Type: 
  Country: None (occurrence: None)
  Receive Date: 20040311
  Receipt Date: 20040226
  Transmission Date: 20041129
  Serious: Yes (Hospitalization)
  Sender: FDA-Public Use
  Company Number: 7420

PATIENT
  Age: 9 Year
  Sex: Female

DRUGS (6)
  1. METHOTREXATE [Suspect]
     Indication: BONE SARCOMA
     Dosage: 11.1 G ONCE IV
     Route: 042
  2. SODIUM BICARBONATE [Concomitant]
  3. GRANISETRON [Concomitant]
  4. CHLORPROMAZINE HCL [Concomitant]
  5. LEUCOVORIN [Concomitant]
  6. GLYCYRRHIZINATE POTASSIUM [Concomitant]

REACTIONS (6)
  - BONE MARROW DEPRESSION [None]
  - DRUG CLEARANCE DECREASED [None]
  - DRUG LEVEL INCREASED [None]
  - HAEMODIALYSIS [None]
  - HEPATIC FUNCTION ABNORMAL [None]
  - RENAL FAILURE ACUTE [None]
